FAERS Safety Report 23531279 (Version 1)
Quarter: 2024Q1

REPORT INFORMATION
  Report Type: Report from Study
  Country: US (occurrence: None)
  Receive Date: 20240216
  Receipt Date: 20240216
  Transmission Date: 20240410
  Serious: Yes (Other)
  Sender: FDA-Public Use
  Company Number: 2024A033908

PATIENT
  Sex: Female

DRUGS (1)
  1. FARXIGA [Suspect]
     Active Substance: DAPAGLIFLOZIN PROPANEDIOL
     Route: 048

REACTIONS (8)
  - Chronic kidney disease [Unknown]
  - Pollakiuria [Unknown]
  - Blood glucose decreased [Unknown]
  - Tremor [Unknown]
  - Headache [Unknown]
  - Irritability [Unknown]
  - Asthenia [Unknown]
  - Drug intolerance [Unknown]
